FAERS Safety Report 15963445 (Version 1)
Quarter: 2019Q1

REPORT INFORMATION
  Report Type: Spontaneous
  Country: US (occurrence: US)
  Receive Date: 20190214
  Receipt Date: 20190214
  Transmission Date: 20190417
  Serious: No
  Sender: FDA-Public Use
  Company Number: US-ALLERGAN-1848495US

PATIENT

DRUGS (2)
  1. OZURDEX [Suspect]
     Active Substance: DEXAMETHASONE
     Dosage: 0.7 MG, SINGLE
     Route: 031
  2. OZURDEX [Suspect]
     Active Substance: DEXAMETHASONE
     Indication: PRODUCT USED FOR UNKNOWN INDICATION
     Dosage: 0.7 MG, SINGLE
     Route: 031
     Dates: start: 20181008, end: 20181008

REACTIONS (2)
  - Product quality issue [Unknown]
  - Foreign body in eye [Unknown]
